FAERS Safety Report 18761909 (Version 2)
Quarter: 2022Q2

REPORT INFORMATION
  Report Type: Spontaneous
  Country: US (occurrence: US)
  Receive Date: 20210120
  Receipt Date: 20220412
  Transmission Date: 20220720
  Serious: Yes (Other)
  Sender: FDA-Public Use
  Company Number: US-GLAXOSMITHKLINE-US2021GSK012310

PATIENT
  Sex: Female

DRUGS (8)
  1. ZANTAC [Suspect]
     Active Substance: RANITIDINE HYDROCHLORIDE
     Indication: Gastrooesophageal reflux disease
     Dosage: 25 MG
     Route: 065
     Dates: start: 199601, end: 201801
  2. ZANTAC [Suspect]
     Active Substance: RANITIDINE HYDROCHLORIDE
     Dosage: 25 MG, BID
     Route: 065
     Dates: start: 199601, end: 201801
  3. ZANTAC [Suspect]
     Active Substance: RANITIDINE HYDROCHLORIDE
     Indication: Gastrooesophageal reflux disease
     Dosage: 25 MG
     Route: 065
     Dates: start: 199601, end: 201801
  4. ZANTAC [Suspect]
     Active Substance: RANITIDINE HYDROCHLORIDE
     Dosage: 25 MG, BID
     Route: 065
     Dates: start: 199601, end: 201801
  5. RANITIDINE [Suspect]
     Active Substance: RANITIDINE
     Indication: Gastrooesophageal reflux disease
     Dosage: 25 MG
     Route: 065
     Dates: start: 199601, end: 201801
  6. RANITIDINE [Suspect]
     Active Substance: RANITIDINE
     Dosage: 25 MG, BID
     Route: 065
     Dates: start: 199601, end: 201801
  7. RANITIDINE [Suspect]
     Active Substance: RANITIDINE
     Indication: Gastrooesophageal reflux disease
     Dosage: 25 MG
     Route: 065
     Dates: start: 199601, end: 201801
  8. RANITIDINE [Suspect]
     Active Substance: RANITIDINE
     Dosage: 25 MG, BID
     Route: 065
     Dates: start: 199601, end: 201801

REACTIONS (1)
  - Renal cancer [Unknown]
